FAERS Safety Report 10056249 (Version 1)
Quarter: 2014Q2

REPORT INFORMATION
  Report Type: Spontaneous
  Country: US (occurrence: US)
  Receive Date: 20140403
  Receipt Date: 20140403
  Transmission Date: 20141212
  Serious: Yes (Other)
  Sender: FDA-Public Use
  Company Number: US-PFIZER INC-2014090335

PATIENT
  Age: 38 Year
  Sex: Female
  Weight: 68.03 kg

DRUGS (7)
  1. NEURONTIN [Suspect]
     Indication: COMPLEX REGIONAL PAIN SYNDROME
     Dosage: UNK
     Route: 048
  2. NEURONTIN [Suspect]
     Dosage: 1200 MG (FOUR 300MG), 3X/DAY
     Route: 048
  3. HYDROCHLOROTHIAZIDE/METOPROLOL [Concomitant]
     Indication: HYPERTENSION
     Dosage: UNK
  4. MORPHINE [Concomitant]
     Dosage: UNK
  5. NORCO [Concomitant]
     Dosage: UNK
  6. KEPPRA [Concomitant]
     Dosage: UNK
  7. ZOFRAN [Concomitant]
     Dosage: UNK

REACTIONS (4)
  - Drug hypersensitivity [Unknown]
  - Fluid retention [Unknown]
  - Swelling [Unknown]
  - Weight increased [Unknown]
